FAERS Safety Report 4495071-0 (Version None)
Quarter: 2004Q4

REPORT INFORMATION
  Report Type: 
  Country: None (occurrence: None)
  Receive Date: 20041108
  Receipt Date: 20041020
  Transmission Date: 20050328
  Serious: Yes (Hospitalization)
  Sender: FDA-Public Use
  Company Number: AE-ABBOTT-04P-166-0278283-00

PATIENT
  Sex: Male
  Weight: 19 kg

DRUGS (2)
  1. VALPARIN SYRUP [Suspect]
     Indication: EPILEPSY
     Route: 048
     Dates: start: 20040801, end: 20040914
  2. VALPARIN SYRUP [Suspect]
     Route: 048
     Dates: start: 20040202, end: 20040801

REACTIONS (8)
  - CONVULSION [None]
  - DEPRESSED LEVEL OF CONSCIOUSNESS [None]
  - ENCEPHALOPATHY [None]
  - HEPATITIS VIRAL [None]
  - HYPOTONIA [None]
  - LOSS OF CONSCIOUSNESS [None]
  - OVERDOSE [None]
  - THROMBOCYTOPENIA [None]
